FAERS Safety Report 16679168 (Version 1)
Quarter: 2019Q3

REPORT INFORMATION
  Report Type: Spontaneous
  Country: TH (occurrence: TH)
  Receive Date: 20190807
  Receipt Date: 20190807
  Transmission Date: 20191004
  Serious: Yes (Hospitalization)
  Sender: FDA-Public Use
  Company Number: TH-TAIHO ONCOLOGY  INC-JPTT190153

PATIENT
  Age: 48 Year
  Sex: Female

DRUGS (1)
  1. LONSURF [Suspect]
     Active Substance: TIPIRACIL HYDROCHLORIDE\TRIFLURIDINE
     Indication: COLORECTAL CANCER METASTATIC
     Dosage: ON DAY 1-5, 8-12 OF 28 DAY CYCLE
     Route: 048
     Dates: start: 20190617, end: 20190628

REACTIONS (3)
  - Blood pressure decreased [Unknown]
  - Sepsis [Unknown]
  - Intestinal obstruction [Unknown]

NARRATIVE: CASE EVENT DATE: 20190710
